FAERS Safety Report 6248406-2 (Version None)
Quarter: 2009Q2

REPORT INFORMATION
  Report Type: 
  Country: None (occurrence: None)
  Receive Date: 20090629
  Receipt Date: 20090624
  Transmission Date: 20091009
  Serious: Yes (Death, Hospitalization)
  Sender: FDA-Public Use
  Company Number: PHHY2008MX28653

PATIENT
  Age: 89 Year
  Sex: Male

DRUGS (3)
  1. DIOVAN HCT [Suspect]
     Indication: HYPERTENSION
     Dosage: 1 DF, QD
     Route: 048
     Dates: start: 20010401, end: 20081106
  2. VITAMINS [Concomitant]
  3. ANTIBIOTIC [Concomitant]

REACTIONS (7)
  - APHASIA [None]
  - BENIGN PROSTATIC HYPERPLASIA [None]
  - CARDIO-RESPIRATORY ARREST [None]
  - CEREBRAL INFARCTION [None]
  - INFECTION [None]
  - MOVEMENT DISORDER [None]
  - SURGERY [None]
